FAERS Safety Report 8773761 (Version 4)
Quarter: 2014Q2

REPORT INFORMATION
  Report Type: Spontaneous
  Country: US (occurrence: US)
  Receive Date: 20120913
  Receipt Date: 20131024
  Transmission Date: 20141212
  Serious: No
  Sender: FDA-Public Use
  Company Number: US-PFIZER INC-2012217733

PATIENT
  Age: 54 Year
  Sex: Female
  Weight: 45.35 kg

DRUGS (4)
  1. PREMPRO [Suspect]
     Indication: PREMATURE MENOPAUSE
     Dosage: 1 DF, (0.45/1.5 MG), 2X/DAY
  2. PREMPHASE [Suspect]
     Dosage: UNK
  3. METOPROLOL [Concomitant]
     Indication: HEART RATE IRREGULAR
     Dosage: 25 MG, 1X/DAY
  4. TESTOPEL [Concomitant]
     Dosage: EVERY 3 MONTHS

REACTIONS (3)
  - Product size issue [Unknown]
  - Feeling abnormal [Unknown]
  - Drug effect incomplete [Unknown]
